FAERS Safety Report 6050018-0 (Version None)
Quarter: 2009Q1

REPORT INFORMATION
  Report Type: 
  Country: None (occurrence: None)
  Receive Date: 20090121
  Receipt Date: 20090114
  Transmission Date: 20090719
  Serious: Yes (Death)
  Sender: FDA-Public Use
  Company Number: 2008SP025997

PATIENT
  Age: 63 Year
  Sex: Male

DRUGS (1)
  1. POTASSIUM CHLORIDE [Suspect]
     Indication: DRUG USE FOR UNKNOWN INDICATION
     Dosage: 20 MEQ;QD;PO
     Route: 048

REACTIONS (1)
  - DEATH [None]
